FAERS Safety Report 6274813-8 (Version None)
Quarter: 2009Q3

REPORT INFORMATION
  Report Type: 
  Country: None (occurrence: None)
  Receive Date: 20090721
  Receipt Date: 20090708
  Transmission Date: 20100115
  Serious: Yes (Hospitalization, Other)
  Sender: FDA-Public Use
  Company Number: US-TEVA-194127USA

PATIENT
  Age: 26 Year
  Sex: Female

DRUGS (6)
  1. PROPOFOL [Suspect]
     Indication: ENDOSCOPY
     Route: 042
     Dates: start: 20090504, end: 20090504
  2. PROPOFOL [Suspect]
     Indication: GENERAL ANAESTHESIA
     Dosage: 120 UG/KG/MIN
     Route: 041
     Dates: start: 20090504, end: 20090504
  3. GLYCOPYRROLATE INJECTION, USP [Suspect]
     Route: 042
     Dates: start: 20090504
  4. MIDAZOLAM HCL [Suspect]
     Route: 042
     Dates: start: 20090504
  5. LIDOCAINE [Suspect]
     Indication: GENERAL ANAESTHESIA
     Route: 042
     Dates: start: 20090504, end: 20090504
  6. FENTANYL-100 [Suspect]
     Indication: GENERAL ANAESTHESIA
     Route: 042
     Dates: start: 20090504, end: 20090504

REACTIONS (15)
  - ABDOMINAL PAIN [None]
  - ANAESTHETIC COMPLICATION NEUROLOGICAL [None]
  - CHILLS [None]
  - CRYING [None]
  - DEPRESSED LEVEL OF CONSCIOUSNESS [None]
  - DIZZINESS [None]
  - DYSKINESIA [None]
  - HEADACHE [None]
  - INFLUENZA LIKE ILLNESS [None]
  - OPISTHOTONUS [None]
  - POSTOPERATIVE FEVER [None]
  - PRODUCT CONTAMINATION MICROBIAL [None]
  - PROTRUSION TONGUE [None]
  - TARDIVE DYSKINESIA [None]
  - TONGUE DISORDER [None]
